FAERS Safety Report 10515549 (Version 1)
Quarter: 2014Q4

REPORT INFORMATION
  Report Type: Spontaneous
  Country: US (occurrence: None)
  Receive Date: 20141009
  Receipt Date: 20141009
  Transmission Date: 20150528
  Serious: Yes (Hospitalization)
  Sender: FDA-Public Use
  Company Number: USW201409-000225

PATIENT
  Age: 73 Year
  Sex: Male
  Weight: 99.76 kg

DRUGS (3)
  1. APOKYN [Suspect]
     Active Substance: APOMORPHINE HYDROCHLORIDE
     Indication: PARKINSON^S DISEASE
     Dosage: 5 TIME A DAY
     Dates: start: 201312, end: 20140925
  2. SINEMET (LEVODOPA/CARVIDOPA) [Concomitant]
  3. MERIDIA (SIBUTRAMINE HYDROCHLORIDE MONOHYDRATE) (SIBUTRAMINE HYDROCHLORIDE MONOHYDRATE) [Concomitant]

REACTIONS (6)
  - Cold sweat [None]
  - Unresponsive to stimuli [None]
  - Hypotension [None]
  - Hyperhidrosis [None]
  - Somnolence [None]
  - Skin discolouration [None]

NARRATIVE: CASE EVENT DATE: 20140213
